FAERS Safety Report 13839027 (Version 1)
Quarter: 2017Q3

REPORT INFORMATION
  Report Type: Spontaneous
  Country: US (occurrence: US)
  Receive Date: 20170805
  Receipt Date: 20170805
  Transmission Date: 20171127
  Serious: Yes (Disabling)
  Sender: FDA-Public Use
  Company Number: None

PATIENT
  Age: 52 Year
  Sex: Female
  Weight: 61.65 kg

DRUGS (1)
  1. LEVOFLOXACIN. [Suspect]
     Active Substance: LEVOFLOXACIN
     Indication: SINUSITIS
     Dosage: ?          QUANTITY:1 CAPSULE(S);?EVERY12 HOURS ORAL
     Route: 048
     Dates: start: 20151010, end: 20151020

REACTIONS (2)
  - Idiopathic intracranial hypertension [None]
  - Headache [None]

NARRATIVE: CASE EVENT DATE: 20151020
